FAERS Safety Report 15584563 (Version 1)
Quarter: 2018Q4

REPORT INFORMATION
  Report Type: Spontaneous
  Country: US (occurrence: US)
  Receive Date: 20181105
  Receipt Date: 20181105
  Transmission Date: 20190205
  Serious: Yes (Hospitalization)
  Sender: FDA-Public Use
  Company Number: None

PATIENT
  Age: 84 Year
  Sex: Female

DRUGS (14)
  1. METOPROL TAR [Concomitant]
  2. BENZONATATE. [Concomitant]
     Active Substance: BENZONATATE
  3. MONTELUKAST [Concomitant]
     Active Substance: MONTELUKAST SODIUM
  4. SILDENAFIL. [Suspect]
     Active Substance: SILDENAFIL
     Indication: HYPERTENSION
     Route: 048
     Dates: start: 20180119
  5. LEVOTHYROXIN [Concomitant]
     Active Substance: LEVOTHYROXINE
  6. LOSARTAN POT [Concomitant]
     Active Substance: LOSARTAN POTASSIUM
  7. CITALOPRAM [Concomitant]
     Active Substance: CITALOPRAM HYDROBROMIDE
  8. SIMVASTATIN. [Concomitant]
     Active Substance: SIMVASTATIN
  9. LORATADINE. [Concomitant]
     Active Substance: LORATADINE
  10. AMLODIPINE [Concomitant]
     Active Substance: AMLODIPINE BESYLATE
  11. AMOXICILLIN. [Concomitant]
     Active Substance: AMOXICILLIN
  12. OMEPRAZOLE. [Concomitant]
     Active Substance: OMEPRAZOLE
  13. CICLOPIROX. [Concomitant]
     Active Substance: CICLOPIROX
  14. OXYBUTYNIN. [Concomitant]
     Active Substance: OXYBUTYNIN CHLORIDE

REACTIONS (1)
  - Hip fracture [None]

NARRATIVE: CASE EVENT DATE: 20180515
